FAERS Safety Report 7655544-6 (Version None)
Quarter: 2011Q3

REPORT INFORMATION
  Report Type: 
  Country: None (occurrence: None)
  Receive Date: 20110804
  Receipt Date: 20110722
  Transmission Date: 20111222
  Serious: Yes (Other)
  Sender: FDA-Public Use
  Company Number: PHFR2011GB04456

PATIENT
  Age: 32 Year
  Sex: Male

DRUGS (2)
  1. SIROLIMUS [Interacting]
     Indication: HEART TRANSPLANT
  2. TEGRETOL [Suspect]
     Indication: CONVULSION
     Dosage: 200 MG, BID
     Route: 048
     Dates: start: 20101201, end: 20110201

REACTIONS (2)
  - DRUG LEVEL DECREASED [None]
  - DRUG INTERACTION [None]
